FAERS Safety Report 14421890 (Version 1)
Quarter: 2018Q1

REPORT INFORMATION
  Report Type: Spontaneous
  Country: BR (occurrence: BR)
  Receive Date: 20180122
  Receipt Date: 20180122
  Transmission Date: 20180509
  Serious: Yes (Death, Other)
  Sender: FDA-Public Use
  Company Number: BR-009507513-1801BRA007619

PATIENT
  Sex: Male

DRUGS (4)
  1. DORMONID TABLETS [Concomitant]
     Dosage: UNK
     Dates: start: 20180110, end: 201801
  2. SUFENTANIL [Concomitant]
     Active Substance: SUFENTANIL
     Dosage: UNK
     Dates: start: 20180110, end: 201801
  3. ESMERON [Suspect]
     Active Substance: ROCURONIUM BROMIDE
     Dosage: 10 MG/ML, UNK
     Dates: start: 20180111, end: 20180111
  4. ETOMIDATE. [Concomitant]
     Active Substance: ETOMIDATE
     Dosage: UNK
     Dates: start: 20180111, end: 20180111

REACTIONS (1)
  - Anaphylactic shock [Fatal]

NARRATIVE: CASE EVENT DATE: 20180111
